FAERS Safety Report 12434516 (Version 2)
Quarter: 2016Q3

REPORT INFORMATION
  Report Type: Spontaneous
  Country: US (occurrence: US)
  Receive Date: 20160603
  Receipt Date: 20160711
  Transmission Date: 20161109
  Serious: No
  Sender: FDA-Public Use
  Company Number: US-BRISTOL-MYERS SQUIBB COMPANY-BMS-2016-040678

PATIENT
  Sex: Female

DRUGS (3)
  1. TAREXTUMAB [Suspect]
     Active Substance: TAREXTUMAB
     Indication: SMALL CELL LUNG CANCER
     Route: 065
  2. CARBOPLATIN. [Suspect]
     Active Substance: CARBOPLATIN
     Indication: SMALL CELL LUNG CANCER
     Route: 065
  3. ETOPOSIDE PHOSPHATE [Suspect]
     Active Substance: ETOPOSIDE PHOSPHATE
     Indication: SMALL CELL LUNG CANCER
     Route: 065

REACTIONS (7)
  - Dyspnoea [Unknown]
  - Weight increased [Unknown]
  - Anger [Unknown]
  - Urticaria [Unknown]
  - Diarrhoea [Unknown]
  - Rash [Unknown]
  - Chest discomfort [Unknown]
